FAERS Safety Report 21294379 (Version 1)
Quarter: 2022Q3

REPORT INFORMATION
  Report Type: Spontaneous
  Country: FR (occurrence: FR)
  Receive Date: 20220905
  Receipt Date: 20220905
  Transmission Date: 20221026
  Serious: Yes (Hospitalization)
  Sender: FDA-Public Use
  Company Number: None

PATIENT
  Age: 37 Year
  Sex: Female

DRUGS (3)
  1. VALIUM [Suspect]
     Active Substance: DIAZEPAM
     Indication: Product used for unknown indication
     Dosage: PAS DE CHIFFRE PRECIS MAIS ^BEAUCOUP DE COMPRIMES PAR JOURS^
     Route: 050
     Dates: start: 2022
  2. 1-(BENZOFURAN-5-YL)-N-METHYLPROPAN-2-AMINE [Suspect]
     Active Substance: 1-(BENZOFURAN-5-YL)-N-METHYLPROPAN-2-AMINE
     Indication: Product used for unknown indication
     Dosage: PAS DE DOSE PRECISE MAIS QUANTITE IMPORTANTE
     Dates: start: 202206
  3. ACETAMINOPHEN\OPIUM [Suspect]
     Active Substance: ACETAMINOPHEN\OPIUM
     Indication: Product used for unknown indication
     Dosage: 3 A 4 COMPRIMES PAR JOUR
     Route: 050
     Dates: start: 20220615

REACTIONS (3)
  - Euphoric mood [Recovered/Resolved]
  - Intentional product misuse [Unknown]
  - Drug abuse [Unknown]

NARRATIVE: CASE EVENT DATE: 20220601
